FAERS Safety Report 16908904 (Version 2)
Quarter: 2019Q4

REPORT INFORMATION
  Report Type: Spontaneous
  Country: GB (occurrence: GB)
  Receive Date: 20191011
  Receipt Date: 20191029
  Transmission Date: 20200122
  Serious: Yes (Death)
  Sender: FDA-Public Use
  Company Number: GB-TAIHO ONCOLOGY  INC-IM-2019-00545

PATIENT
  Age: 63 Year
  Sex: Female

DRUGS (1)
  1. LONSURF [Suspect]
     Active Substance: TIPIRACIL HYDROCHLORIDE\TRIFLURIDINE
     Indication: ADENOCARCINOMA OF COLON
     Dosage: UNK
     Route: 065

REACTIONS (6)
  - Leukopenia [Unknown]
  - Thrombocytopenia [Unknown]
  - Neutropenia [Recovered/Resolved]
  - Fatigue [Recovered/Resolved]
  - Malignant neoplasm progression [Fatal]
  - Anaemia [Unknown]

NARRATIVE: CASE EVENT DATE: 20190312
